FAERS Safety Report 19095691 (Version 4)
Quarter: 2021Q4

REPORT INFORMATION
  Report Type: Spontaneous
  Country: JP (occurrence: JP)
  Receive Date: 20210406
  Receipt Date: 20211124
  Transmission Date: 20220303
  Serious: Yes (Death, Hospitalization, Other)
  Sender: FDA-Public Use
  Company Number: JP-KYOWAKIRIN-2021AKK005616

PATIENT
  Age: 96 Year
  Sex: Female

DRUGS (31)
  1. DARBEPOETIN ALFA [Suspect]
     Active Substance: DARBEPOETIN ALFA
     Indication: Nephrogenic anaemia
     Dosage: 60 MICROGRAM, QWK
     Route: 065
     Dates: start: 20201230
  2. DARBEPOETIN ALFA [Suspect]
     Active Substance: DARBEPOETIN ALFA
     Dosage: 30 MICROGRAM, QWK
     Route: 065
     Dates: start: 20201230
  3. DAPRODUSTAT [Suspect]
     Active Substance: DAPRODUSTAT
     Indication: Nephrogenic anaemia
     Dosage: 4 MILLIGRAM, QD, AFTER DINNER
     Route: 048
     Dates: start: 20201228, end: 20201228
  4. FLUTICASONE FUROATE\VILANTEROL TRIFENATATE [Suspect]
     Active Substance: FLUTICASONE FUROATE\VILANTEROL TRIFENATATE
     Indication: Dyspnoea
     Dosage: 1 DOSAGE FORM, QD
     Route: 065
     Dates: start: 20201201
  5. CELIPROLOL HYDROCHLORIDE [Concomitant]
     Active Substance: CELIPROLOL HYDROCHLORIDE
     Dosage: 200 MILLIGRAM
     Route: 048
  6. ASPIRIN\LANSOPRAZOLE [Concomitant]
     Active Substance: ASPIRIN\LANSOPRAZOLE
     Dosage: 1 DOSAGE FORM
     Route: 048
  7. ALLOPURINOL [Concomitant]
     Active Substance: ALLOPURINOL
     Dosage: 100 MILLIGRAM
     Route: 048
  8. FUROSEMIDE [Concomitant]
     Active Substance: FUROSEMIDE
     Dosage: 40 MILLIGRAM, QD, AFTER BREAKFAST
     Route: 048
     Dates: end: 20201229
  9. ISOSORBIDE MONONITRATE [Concomitant]
     Active Substance: ISOSORBIDE MONONITRATE
     Dosage: 40 MILLIGRAM
     Route: 048
  10. AMITIZA [Concomitant]
     Active Substance: LUBIPROSTONE
     Dosage: 24 MICROGRAM
     Route: 048
  11. POLAPREZINC [Concomitant]
     Active Substance: POLAPREZINC
     Dosage: 75 MILLIGRAM, BID, AFTER BREAKFAST AND DINNER
     Route: 048
     Dates: end: 20201229
  12. FOLIC ACID [Concomitant]
     Active Substance: FOLIC ACID
     Dosage: 5 MILLIGRAM, QD, AFTER DINNER
     Route: 048
     Dates: end: 20201229
  13. AMBROXOL HYDROCHLORIDE [Concomitant]
     Active Substance: AMBROXOL HYDROCHLORIDE
     Dosage: 15 MILLIGRAM, TID, AFTER EACH MEAL
     Route: 048
     Dates: end: 20201229
  14. TULOBUTEROL [Concomitant]
     Active Substance: TULOBUTEROL
     Indication: Dyspnoea
     Dosage: 2 MILLIGRAM, QD, ON THE CHEST
  15. IRON SUCROSE [Concomitant]
     Active Substance: IRON SUCROSE
     Dosage: 40 MILLIGRAM, QWK
     Route: 042
     Dates: start: 20201230
  16. CALONAL [Concomitant]
     Active Substance: ACETAMINOPHEN
     Dosage: 200 MILLIGRAM, PRN
     Route: 048
     Dates: start: 20201228, end: 20201228
  17. REBAMIPIDE [Concomitant]
     Active Substance: REBAMIPIDE
     Indication: Back pain
     Dosage: 100 MILLIGRAM, PRN
     Route: 048
     Dates: start: 20201228, end: 20201228
  18. REBAMIPIDE [Concomitant]
     Active Substance: REBAMIPIDE
     Indication: Abdominal pain
     Dosage: UNK
  19. BISOPROLOL [Concomitant]
     Active Substance: BISOPROLOL
     Dosage: 4 MILLIGRAM, QD, ON THE CHEST
     Dates: start: 20201229
  20. ISOSORBIDE DINITRATE [Concomitant]
     Active Substance: ISOSORBIDE DINITRATE
     Dosage: 40 MILLIGRAM, QD, ON THE CHEST
     Dates: start: 20201229
  21. SODIUM BICARBONATE\SODIUM PHOSPHATE, MONOBASIC [Concomitant]
     Active Substance: SODIUM BICARBONATE\SODIUM PHOSPHATE, MONOBASIC
     Dosage: 1 DOSAGE FORM, WHEN CONSTIPATED
     Route: 054
     Dates: start: 20201231
  22. ISOTONIC SODIUM CHLORIDE SOLUTION [Concomitant]
     Active Substance: SODIUM CHLORIDE
     Dosage: 100 MILLILITER
     Route: 041
     Dates: start: 20201229
  23. PRIMPERAN [Concomitant]
     Active Substance: METOCLOPRAMIDE HYDROCHLORIDE
     Indication: Vomiting
     Dosage: 10 MILLIGRAM
     Route: 041
     Dates: start: 20201229
  24. KN-MG3 [Concomitant]
     Dosage: 500 MILLILITER
     Route: 041
     Dates: start: 20201230
  25. KIDMIN [AMINO ACIDS NOS] [Concomitant]
     Dosage: 200 MILLILITER
     Route: 041
     Dates: start: 20201230
  26. DEXTROSE [Concomitant]
     Active Substance: DEXTROSE
     Dosage: 40 MILLILITER
     Route: 041
     Dates: start: 20201230
  27. LANSOPRAZOLE [Concomitant]
     Active Substance: LANSOPRAZOLE
     Dosage: 30 MILLIGRAM
     Route: 041
     Dates: start: 20201231
  28. CALCIUM CHLORIDE ANHYDROUS\POTASSIUM CHLORIDE\SODIUM CHLORIDE\SODIUM L [Concomitant]
     Active Substance: CALCIUM CHLORIDE ANHYDROUS\POTASSIUM CHLORIDE\SODIUM CHLORIDE\SODIUM LACTATE
     Dosage: 500 MILLILITER
     Route: 041
     Dates: start: 20210105
  29. BISOLVON [Concomitant]
     Active Substance: BROMHEXINE HYDROCHLORIDE
     Dosage: 4 MILLIGRAM
     Route: 041
     Dates: start: 20210102
  30. BISOLVON [Concomitant]
     Active Substance: BROMHEXINE HYDROCHLORIDE
     Dosage: 4 UNK  *SINGLE
     Route: 041
     Dates: start: 20210102
  31. DEXPANTHENOL [Concomitant]
     Active Substance: DEXPANTHENOL
     Dosage: 500 MILLIGRAM
     Route: 041
     Dates: start: 20210104

REACTIONS (13)
  - Abdominal incarcerated hernia [Fatal]
  - Intestinal obstruction [Fatal]
  - Shunt occlusion [Unknown]
  - Ileus [Unknown]
  - Haematemesis [Unknown]
  - Hypercapnia [Fatal]
  - Hypercapnia [Fatal]
  - Atrial fibrillation [Fatal]
  - Abdominal distension [Unknown]
  - Sputum retention [Unknown]
  - Gastrointestinal sounds abnormal [Unknown]
  - Discoloured vomit [Unknown]
  - Dehydration [Unknown]

NARRATIVE: CASE EVENT DATE: 20201230
